FAERS Safety Report 8394913-6 (Version None)
Quarter: 2012Q2

REPORT INFORMATION
  Report Type: 
  Country: None (occurrence: None)
  Receive Date: 20120530
  Receipt Date: 20110601
  Transmission Date: 20120825
  Serious: No
  Sender: FDA-Public Use
  Company Number: US-GLAXOSMITHKLINE-A0930673A

PATIENT
  Age: 61 Year
  Sex: Female
  Weight: 66.4 kg

DRUGS (9)
  1. REVATIO [Concomitant]
     Dosage: 20MG THREE TIMES PER DAY
  2. OMEPRAZOLE [Concomitant]
     Dosage: 20MG TWICE PER DAY
  3. FLOLAN [Suspect]
     Indication: PULMONARY ARTERIAL HYPERTENSION
     Dosage: 26NGKM UNKNOWN
     Route: 065
     Dates: start: 20081210
  4. SPIRONOLACTONE [Concomitant]
     Dosage: 25MG PER DAY
  5. FUROSEMIDE [Concomitant]
     Dosage: 40MG PER DAY
  6. LETAIRIS [Suspect]
     Dosage: 10MG PER DAY
     Route: 048
  7. OXYGEN [Concomitant]
  8. POTASSIUM CHLORIDE [Concomitant]
     Dosage: 20MEQ TWICE PER DAY
  9. DIPHENHYDRAMINE HCL [Concomitant]
     Dosage: 25MG THREE TIMES PER DAY

REACTIONS (2)
  - OCULAR HYPERAEMIA [None]
  - EYE PAIN [None]
